FAERS Safety Report 4926926-8 (Version None)
Quarter: 2006Q1

REPORT INFORMATION
  Report Type: 
  Country: None (occurrence: None)
  Receive Date: 20060228
  Receipt Date: 20050912
  Transmission Date: 20060701
  Serious: Yes (Other)
  Sender: FDA-Public Use
  Company Number: US-GLAXOSMITHKLINE-A0574056A

PATIENT
  Age: 24 Year
  Sex: Female
  Weight: 77.3 kg

DRUGS (6)
  1. LAMICTAL [Suspect]
     Indication: BIPOLAR DISORDER
     Route: 048
     Dates: start: 20050806, end: 20050912
  2. TOPAMAX [Concomitant]
  3. EFFEXOR XR [Concomitant]
  4. RITALIN [Concomitant]
  5. SEROQUEL [Concomitant]
  6. TRAZODONE [Concomitant]

REACTIONS (3)
  - ANGIONEUROTIC OEDEMA [None]
  - LYMPHADENOPATHY [None]
  - SWOLLEN TONGUE [None]
